FAERS Safety Report 16758635 (Version 1)
Quarter: 2019Q3

REPORT INFORMATION
  Report Type: Spontaneous
  Country: DE (occurrence: DE)
  Receive Date: 20190830
  Receipt Date: 20190830
  Transmission Date: 20191005
  Serious: Yes (Life-Threatening, Other)
  Sender: FDA-Public Use
  Company Number: DE-TEVA-2019-DE-1099633

PATIENT
  Age: 56 Year
  Sex: Female
  Weight: 60 kg

DRUGS (4)
  1. FOLINSAEURE [Concomitant]
     Active Substance: LEUCOVORIN
  2. 5-FU [Suspect]
     Active Substance: FLUOROURACIL
     Indication: APPENDIX CANCER
     Dosage: 4600 MG
     Route: 042
     Dates: start: 20190710
  3. IRINOTECAN KABI [Suspect]
     Active Substance: IRINOTECAN
     Indication: APPENDIX CANCER
     Route: 065
  4. AFLIBERCEPT [Suspect]
     Active Substance: AFLIBERCEPT
     Indication: APPENDIX CANCER
     Route: 042
     Dates: start: 20190710

REACTIONS (2)
  - Leukopenia [Unknown]
  - Stomatitis [Not Recovered/Not Resolved]

NARRATIVE: CASE EVENT DATE: 20190718
